FAERS Safety Report 9824083 (Version 2)
Quarter: 2014Q1

REPORT INFORMATION
  Report Type: Spontaneous
  Country: US (occurrence: US)
  Receive Date: 20140116
  Receipt Date: 20140116
  Transmission Date: 20141002
  Serious: No
  Sender: FDA-Public Use
  Company Number: US-GILEAD-2011-0038408

PATIENT
  Sex: Female

DRUGS (7)
  1. LETAIRIS [Suspect]
     Indication: PULMONARY HYPERTENSION
     Route: 048
  2. LETAIRIS [Suspect]
     Indication: DIAPHRAGMATIC HERNIA
  3. LETAIRIS [Suspect]
     Indication: LEFT VENTRICULAR FAILURE
  4. REMODULIN [Concomitant]
  5. PLAVIX                             /01220701/ [Concomitant]
  6. LASIX                              /00032601/ [Concomitant]
  7. ASPIRIN [Concomitant]

REACTIONS (1)
  - Aspartate aminotransferase increased [Unknown]
